FAERS Safety Report 5368310-1 (Version None)
Quarter: 2007Q2

REPORT INFORMATION
  Report Type: 
  Country: None (occurrence: None)
  Receive Date: 20070625
  Receipt Date: 20070615
  Transmission Date: 20071010
  Serious: Yes (Other)
  Sender: FDA-Public Use
  Company Number: FR-AMGEN-US219750

PATIENT
  Sex: Male
  Weight: 86 kg

DRUGS (4)
  1. ENBREL [Suspect]
     Indication: ANKYLOSING SPONDYLITIS
     Route: 058
     Dates: start: 20051123, end: 20070101
  2. ENBREL [Suspect]
     Route: 058
     Dates: start: 20070101, end: 20070413
  3. ACETAMINOPHEN [Concomitant]
     Dosage: 1 G; FREQUENCY UNSPEC.
     Route: 048
  4. FELDENE [Concomitant]
     Dosage: 20 MG; FREQUENCY UNSPEC.
     Route: 048

REACTIONS (2)
  - CONDITION AGGRAVATED [None]
  - IRIDOCYCLITIS [None]
